FAERS Safety Report 21139449 (Version 4)
Quarter: 2022Q4

REPORT INFORMATION
  Report Type: Spontaneous
  Country: JP (occurrence: JP)
  Receive Date: 20220727
  Receipt Date: 20221205
  Transmission Date: 20230113
  Serious: Yes (Hospitalization, Other)
  Sender: FDA-Public Use
  Company Number: JP-DSJP-DSJ-2022-126154

PATIENT
  Age: 64 Year
  Sex: Male
  Weight: 60 kg

DRUGS (6)
  1. ENHERTU [Suspect]
     Active Substance: FAM-TRASTUZUMAB DERUXTECAN-NXKI
     Indication: HER2 positive gastric cancer
     Dosage: 5.4 MG/KG, ONCE EVERY 3 WK
     Route: 041
     Dates: start: 20220606, end: 20220606
  2. ENHERTU [Suspect]
     Active Substance: FAM-TRASTUZUMAB DERUXTECAN-NXKI
     Indication: Adenocarcinoma gastric
     Dosage: 4.4 MG/KG, ONCE EVERY 3 WK
     Route: 041
  3. AUGMENTIN [Concomitant]
     Active Substance: AMOXICILLIN\CLAVULANATE POTASSIUM
     Indication: Infective spondylitis
     Dosage: 375 MG, QID
     Route: 048
     Dates: start: 20220603, end: 20220611
  4. AMOXICILLIN [Concomitant]
     Active Substance: AMOXICILLIN
     Indication: Infective spondylitis
     Dosage: 250 MG, QID
     Route: 048
     Dates: start: 20220603, end: 20220611
  5. LINAGLIPTIN [Concomitant]
     Active Substance: LINAGLIPTIN
     Indication: Atrial fibrillation
     Dosage: 5 MG, QD
     Route: 048
     Dates: start: 20220531
  6. ELIQUIS [Concomitant]
     Active Substance: APIXABAN
     Indication: Atrial fibrillation
     Dosage: 2.5 MG, BID
     Route: 048
     Dates: start: 20220531

REACTIONS (4)
  - Febrile neutropenia [Recovering/Resolving]
  - Tumour lysis syndrome [Recovering/Resolving]
  - Platelet count decreased [Recovered/Resolved]
  - Underdose [Unknown]

NARRATIVE: CASE EVENT DATE: 20220606
